FAERS Safety Report 19237570 (Version 1)
Quarter: 2021Q2

REPORT INFORMATION
  Report Type: Spontaneous
  Country: US (occurrence: US)
  Receive Date: 20210510
  Receipt Date: 20210510
  Transmission Date: 20210717
  Serious: No
  Sender: FDA-Public Use
  Company Number: US-ORGANON-O2105USA000375

PATIENT
  Sex: Female
  Weight: 103.41 kg

DRUGS (1)
  1. NEXPLANON [Suspect]
     Active Substance: ETONOGESTREL
     Dosage: 1 IMPLANT EVERY 3 YEARS
     Route: 059
     Dates: start: 20210422, end: 20210429

REACTIONS (3)
  - Weight decreased [Recovered/Resolved]
  - Skin disorder [Recovered/Resolved]
  - Implant site pain [Recovered/Resolved]
